FAERS Safety Report 7542840-6 (Version None)
Quarter: 2011Q2

REPORT INFORMATION
  Report Type: 
  Country: None (occurrence: None)
  Receive Date: 20110524
  Receipt Date: 20110217
  Transmission Date: 20111010
  Serious: No
  Sender: FDA-Public Use
  Company Number: 019757

PATIENT
  Sex: Male

DRUGS (1)
  1. CIMZIA [Suspect]
     Indication: CROHN'S DISEASE
     Dosage: (SUBCUTANEOUS)
     Route: 058
     Dates: start: 20100825

REACTIONS (6)
  - HEADACHE [None]
  - PAIN [None]
  - MUSCLE SPASMS [None]
  - ABDOMINAL PAIN [None]
  - FUNGAL INFECTION [None]
  - ARTHRALGIA [None]
